FAERS Safety Report 9684013 (Version 1)
Quarter: 2013Q4

REPORT INFORMATION
  Report Type: Spontaneous
  Country: US (occurrence: None)
  Receive Date: 20131111
  Receipt Date: 20131111
  Transmission Date: 20140711
  Serious: Yes (Other)
  Sender: FDA-Public Use
  Company Number: None

PATIENT
  Age: 50 Year
  Sex: Male
  Weight: 78.47 kg

DRUGS (1)
  1. LANSOPRASOLE 30MG BRECKENRIDGE PHARMACEUTICAL [Suspect]
     Indication: GASTROOESOPHAGEAL REFLUX DISEASE
     Dosage: 1 CAPSULE
     Route: 048

REACTIONS (5)
  - Malaise [None]
  - Lactose intolerance [None]
  - Drug ineffective [None]
  - Product substitution issue [None]
  - Product quality issue [None]
